FAERS Safety Report 4901613-0 (Version None)
Quarter: 2006Q1

REPORT INFORMATION
  Report Type: 
  Country: None (occurrence: None)
  Receive Date: 20060201
  Receipt Date: 20060201
  Transmission Date: 20060701
  Serious: Yes (Other)
  Sender: FDA-Public Use
  Company Number: None

PATIENT
  Sex: Male
  Weight: 72.5755 kg

DRUGS (11)
  1. VYTORIN [Suspect]
     Indication: DYSLIPIDAEMIA
     Dosage: 10/80MG PO DAILY
     Route: 048
     Dates: start: 20050524, end: 20051018
  2. ATENOLOL [Concomitant]
  3. CLOPIDOGREL BISULFATE [Concomitant]
  4. GLYBURIDE [Concomitant]
  5. ISOSORBIDE MONONITRATE [Concomitant]
  6. SYNTHROID [Concomitant]
  7. LISINOPRIL [Concomitant]
  8. LORATADINE [Concomitant]
  9. METFORMIN HCL [Concomitant]
  10. ADALAT CC [Concomitant]
  11. RANITDINE HCL [Concomitant]

REACTIONS (1)
  - MUSCULAR WEAKNESS [None]
